FAERS Safety Report 7432047-5 (Version None)
Quarter: 2011Q2

REPORT INFORMATION
  Report Type: 
  Country: None (occurrence: None)
  Receive Date: 20110422
  Receipt Date: 20110413
  Transmission Date: 20111010
  Serious: Yes (Death)
  Sender: FDA-Public Use
  Company Number: PT-BRISTOL-MYERS SQUIBB COMPANY-15676166

PATIENT
  Sex: Male

DRUGS (1)
  1. DASATINIB [Suspect]

REACTIONS (1)
  - CARDIAC DISORDER [None]
